FAERS Safety Report 8458858-5 (Version None)
Quarter: 2012Q2

REPORT INFORMATION
  Report Type: 
  Country: None (occurrence: None)
  Receive Date: 20120622
  Receipt Date: 20120612
  Transmission Date: 20120825
  Serious: Yes (Hospitalization, Other)
  Sender: FDA-Public Use
  Company Number: US-ELI_LILLY_AND_COMPANY-US201206004543

PATIENT
  Sex: Female

DRUGS (1)
  1. CYMBALTA [Suspect]

REACTIONS (23)
  - MUSCULOSKELETAL STIFFNESS [None]
  - VERTIGO [None]
  - PARAESTHESIA [None]
  - PERSONALITY CHANGE [None]
  - DIZZINESS [None]
  - HEADACHE [None]
  - DRUG WITHDRAWAL SYNDROME [None]
  - BLISTER [None]
  - ABDOMINAL PAIN [None]
  - MOOD SWINGS [None]
  - JOINT STIFFNESS [None]
  - WEIGHT INCREASED [None]
  - ANGER [None]
  - MYALGIA [None]
  - PRURITUS [None]
  - VISUAL IMPAIRMENT [None]
  - PULMONARY HYPERTENSION [None]
  - ATRIAL FIBRILLATION [None]
  - TOOTH FRACTURE [None]
  - SUICIDE ATTEMPT [None]
  - DISSOCIATION [None]
  - FOOD CRAVING [None]
  - ARTHRALGIA [None]
